FAERS Safety Report 13945109 (Version 5)
Quarter: 2023Q4

REPORT INFORMATION
  Report Type: Spontaneous
  Country: JP (occurrence: JP)
  Receive Date: 20170907
  Receipt Date: 20231222
  Transmission Date: 20240110
  Serious: Yes (Hospitalization, Other)
  Sender: FDA-Public Use
  Company Number: JP-OTSUKA-2017_019057

PATIENT
  Age: 50 Year
  Sex: Male

DRUGS (2)
  1. SAMSCA [Suspect]
     Active Substance: TOLVAPTAN
     Indication: Congenital cystic kidney disease
     Dosage: 60 MG (45 MG IN THE MORNING, 15 MG IN THE EVENING)
     Route: 048
     Dates: start: 20170710, end: 20170715
  2. LOSARTAN POTASSIUM [Concomitant]
     Active Substance: LOSARTAN POTASSIUM
     Indication: Product used for unknown indication
     Dosage: 50 MG, QD
     Route: 048

REACTIONS (2)
  - Subarachnoid haemorrhage [Unknown]
  - Ruptured cerebral aneurysm [Recovered/Resolved]

NARRATIVE: CASE EVENT DATE: 20170714
